FAERS Safety Report 11200167 (Version 1)
Quarter: 2015Q2

REPORT INFORMATION
  Report Type: Report from Study
  Country: US (occurrence: US)
  Receive Date: 20150618
  Receipt Date: 20150618
  Transmission Date: 20150821
  Serious: Yes (Other)
  Sender: FDA-Public Use
  Company Number: PHEH2015US010875

PATIENT
  Age: 35 Year
  Sex: Female
  Weight: 107.5 kg

DRUGS (12)
  1. GILENYA [Suspect]
     Active Substance: FINGOLIMOD HYDROCHLORIDE
     Indication: MULTIPLE SCLEROSIS
     Dosage: 0.5 MG, QD
     Route: 048
     Dates: start: 20130620
  2. KEPPRA [Concomitant]
     Active Substance: LEVETIRACETAM
     Indication: PRODUCT USED FOR UNKNOWN INDICATION
     Dosage: UNK
     Route: 065
  3. MIRAPEX [Concomitant]
     Active Substance: PRAMIPEXOLE DIHYDROCHLORIDE
     Indication: PRODUCT USED FOR UNKNOWN INDICATION
     Dosage: UNK
     Route: 065
  4. CALTRATE WITH VITAMIN D [Concomitant]
     Active Substance: CALCIUM CARBONATE\VITAMIN D
     Indication: PRODUCT USED FOR UNKNOWN INDICATION
     Dosage: UNK
     Route: 065
  5. NEURONTIN [Concomitant]
     Active Substance: GABAPENTIN
     Indication: PRODUCT USED FOR UNKNOWN INDICATION
     Dosage: UNK
     Route: 065
  6. CYMBALTA [Concomitant]
     Active Substance: DULOXETINE HYDROCHLORIDE
     Indication: PRODUCT USED FOR UNKNOWN INDICATION
     Dosage: UNK
     Route: 065
  7. LISINOPRIL. [Concomitant]
     Active Substance: LISINOPRIL
     Indication: PRODUCT USED FOR UNKNOWN INDICATION
     Dosage: UNK
     Route: 065
  8. TOPAMAX [Concomitant]
     Active Substance: TOPIRAMATE
     Indication: PRODUCT USED FOR UNKNOWN INDICATION
     Dosage: UNK
     Route: 065
  9. LUNESTA [Concomitant]
     Active Substance: ESZOPICLONE
     Indication: PRODUCT USED FOR UNKNOWN INDICATION
     Dosage: UNK
     Route: 065
  10. VITAMIN D3 [Concomitant]
     Active Substance: CHOLECALCIFEROL
     Indication: PRODUCT USED FOR UNKNOWN INDICATION
     Dosage: UNK
     Route: 065
  11. VESICARE [Concomitant]
     Active Substance: SOLIFENACIN SUCCINATE
     Indication: PRODUCT USED FOR UNKNOWN INDICATION
     Dosage: UNK
     Route: 065
  12. ZOFRAN [Concomitant]
     Active Substance: ONDANSETRON HYDROCHLORIDE
     Indication: PRODUCT USED FOR UNKNOWN INDICATION
     Dosage: UNK
     Route: 065

REACTIONS (37)
  - Seizure [Unknown]
  - Pain in extremity [Unknown]
  - Weight decreased [Unknown]
  - Sleep disorder [Unknown]
  - Multiple sclerosis [Unknown]
  - Paraesthesia [Unknown]
  - Visual acuity reduced [Unknown]
  - Eye discharge [Unknown]
  - Myalgia [Unknown]
  - Back pain [Not Recovered/Not Resolved]
  - Dysuria [Unknown]
  - Blister [Unknown]
  - Urinary tract infection [Unknown]
  - Eye pain [Unknown]
  - Ophthalmoplegia [Unknown]
  - Tremor [Unknown]
  - Muscle spasms [Unknown]
  - Pollakiuria [Unknown]
  - Eating disorder [Unknown]
  - Hypokinesia [Unknown]
  - Ataxia [Unknown]
  - Pyrexia [Unknown]
  - Feeling hot [Unknown]
  - Headache [Not Recovered/Not Resolved]
  - Stomatitis [Unknown]
  - Vision blurred [Unknown]
  - Neck pain [Unknown]
  - Muscular weakness [Not Recovered/Not Resolved]
  - Fatigue [Unknown]
  - Ocular hyperaemia [Unknown]
  - Micturition urgency [Unknown]
  - Extraocular muscle disorder [Unknown]
  - Stress [Unknown]
  - Chills [Unknown]
  - Neuralgia [Unknown]
  - Neuritis [Unknown]
  - Hypertension [Unknown]

NARRATIVE: CASE EVENT DATE: 20131104
